FAERS Safety Report 25981582 (Version 1)
Quarter: 2025Q4

REPORT INFORMATION
  Report Type: Report from Study
  Country: US (occurrence: US)
  Receive Date: 20251030
  Receipt Date: 20251030
  Transmission Date: 20260118
  Serious: Yes (Life-Threatening, Hospitalization, Other)
  Sender: JOHNSON AND JOHNSON
  Company Number: US-JNJFOC-20251037750

PATIENT
  Age: 43 Year
  Sex: Female

DRUGS (8)
  1. SPRAVATO [Suspect]
     Active Substance: ESKETAMINE
     Indication: Depression
     Dosage: ^56 MG, RECENT ADMINISTERED DOSE^
     Route: 045
     Dates: start: 20251027, end: 20251027
  2. CLONIDINE [Suspect]
     Active Substance: CLONIDINE
     Indication: Hypertension
  3. ATIVAN [Suspect]
     Active Substance: LORAZEPAM
     Indication: Anxiety
  4. AMLODIPINE [Suspect]
     Active Substance: AMLODIPINE BESYLATE
     Indication: Hypertension
  5. LEXAPRO [Concomitant]
     Active Substance: ESCITALOPRAM OXALATE
     Indication: Product used for unknown indication
  6. REMERON [Concomitant]
     Active Substance: MIRTAZAPINE
     Indication: Product used for unknown indication
  7. HYDROXYZINE [Concomitant]
     Active Substance: HYDROXYZINE HYDROCHLORIDE
     Indication: Product used for unknown indication
  8. CLONAZEPAM [Concomitant]
     Active Substance: CLONAZEPAM
     Indication: Product used for unknown indication

REACTIONS (3)
  - Blood pressure decreased [Unknown]
  - Sedation [Unknown]
  - Vision blurred [Unknown]

NARRATIVE: CASE EVENT DATE: 20251027
